FAERS Safety Report 7350092-5 (Version None)
Quarter: 2011Q1

REPORT INFORMATION
  Report Type: 
  Country: None (occurrence: None)
  Receive Date: 20110314
  Receipt Date: 20110304
  Transmission Date: 20110831
  Serious: Yes (Hospitalization)
  Sender: FDA-Public Use
  Company Number: A0894553A

PATIENT
  Age: 51 Year
  Sex: Male
  Weight: 170.5 kg

DRUGS (1)
  1. AVANDIA [Suspect]
     Dosage: 4MG TWICE PER DAY
     Route: 048
     Dates: start: 20060411, end: 20070605

REACTIONS (2)
  - ANGINA UNSTABLE [None]
  - ACUTE CORONARY SYNDROME [None]
